FAERS Safety Report 5073444-5 (Version None)
Quarter: 2006Q3

REPORT INFORMATION
  Report Type: 
  Country: None (occurrence: None)
  Receive Date: 20060803
  Receipt Date: 20060721
  Transmission Date: 20061208
  Serious: Yes (Life-Threatening)
  Sender: FDA-Public Use
  Company Number: 2006087882

PATIENT
  Age: 77 Year
  Sex: Female

DRUGS (6)
  1. AMLODIPINE [Suspect]
     Indication: ESSENTIAL HYPERTENSION
     Dosage: 10 MG (5 MG,2 IN 1 D), ORAL
     Route: 048
     Dates: start: 20051103
  2. PANTOPRAZOLE SODIUM [Suspect]
     Indication: REFLUX OESOPHAGITIS
     Dosage: 20 MG (20 MG, 2 IN 1 WK), ORAL
     Route: 048
     Dates: start: 20051122, end: 20060130
  3. BISOPROLOL FUMARATE AND HYDROCHLOROTHIAZIDE [Suspect]
     Indication: ESSENTIAL HYPERTENSION
     Dosage: 1 DF (1 IN 1 D), ORAL
     Route: 048
     Dates: start: 20031201
  4. OMEPRAZOLE [Concomitant]
  5. TRAMADOL HCL [Concomitant]
  6. CODEINE PHOSPHATE/PARACETAMOL [Concomitant]

REACTIONS (8)
  - ABDOMINAL PAIN [None]
  - CARDIOVASCULAR DISORDER [None]
  - INSOMNIA [None]
  - NAUSEA [None]
  - PAIN [None]
  - SHOCK [None]
  - VOMITING [None]
  - WEIGHT DECREASED [None]
